FAERS Safety Report 20856441 (Version 4)
Quarter: 2022Q2

REPORT INFORMATION
  Report Type: Report from Study
  Country: BE (occurrence: BE)
  Receive Date: 20220520
  Receipt Date: 20220630
  Transmission Date: 20220721
  Serious: Yes (Hospitalization)
  Sender: FDA-Public Use
  Company Number: BE-GILEAD-2022-0581917

PATIENT
  Sex: Male
  Weight: 103.9 kg

DRUGS (6)
  1. SACITUZUMAB GOVITECAN [Suspect]
     Active Substance: SACITUZUMAB GOVITECAN
     Indication: Bladder cancer
     Dosage: 10 MG/KG, LAST DOSE PRIOR TO ONSET OF EVENT WAS ON 13-MAY-2022
     Route: 042
     Dates: start: 20220506, end: 20220513
  2. BISOPROLOL [Concomitant]
     Active Substance: BISOPROLOL
     Indication: Hypertension
     Dosage: 5 MG
     Dates: start: 20220127
  3. TRADONAL ODIS [Concomitant]
     Dosage: UNK
     Dates: start: 20220512
  4. TRAMADOL HYDROCHLORIDE [Concomitant]
     Active Substance: TRAMADOL HYDROCHLORIDE
     Dosage: UNK
     Dates: start: 20220512
  5. LOPERAMIDE [Concomitant]
     Active Substance: LOPERAMIDE
     Indication: Diarrhoea
     Dosage: UNK
     Dates: start: 20220521
  6. DEXAMETHASONE [Concomitant]
     Active Substance: DEXAMETHASONE
     Dosage: PREMEDICATION
     Dates: start: 20220506, end: 20220518

REACTIONS (2)
  - Hiccups [Recovered/Resolved]
  - Febrile neutropenia [Recovered/Resolved]

NARRATIVE: CASE EVENT DATE: 20220514
